FAERS Safety Report 7486421-1 (Version None)
Quarter: 2011Q2

REPORT INFORMATION
  Report Type: 
  Country: None (occurrence: None)
  Receive Date: 20110517
  Receipt Date: 20110509
  Transmission Date: 20111010
  Serious: Yes (Other)
  Sender: FDA-Public Use
  Company Number: US-BAYER-2011-012099

PATIENT
  Age: 34 Year
  Sex: Female
  Weight: 72.109 kg

DRUGS (1)
  1. MIRENA [Suspect]
     Indication: CONTRACEPTION
     Dosage: DAILY DOSE 20 MCG/24HR
     Route: 015
     Dates: start: 20060126, end: 20101217

REACTIONS (2)
  - AMENORRHOEA [None]
  - ECTOPIC PREGNANCY WITH INTRAUTERINE DEVICE [None]
